FAERS Safety Report 10110287 (Version 2)
Quarter: 2014Q2

REPORT INFORMATION
  Report Type: Report from Study
  Country: CA (occurrence: CA)
  Receive Date: 20140425
  Receipt Date: 20140505
  Transmission Date: 20141212
  Serious: Yes (Hospitalization)
  Sender: FDA-Public Use
  Company Number: CA-JNJFOC-20140416443

PATIENT
  Age: 87 Year
  Sex: Female
  Weight: 76.2 kg

DRUGS (1)
  1. REMICADE [Suspect]
     Indication: CROHN^S DISEASE
     Route: 042
     Dates: start: 20140409, end: 20140409

REACTIONS (3)
  - Enteritis [Unknown]
  - Dehydration [Unknown]
  - Drug ineffective [Unknown]
